FAERS Safety Report 20343188 (Version 1)
Quarter: 2022Q1

REPORT INFORMATION
  Report Type: Spontaneous
  Country: US (occurrence: US)
  Receive Date: 20220117
  Receipt Date: 20220117
  Transmission Date: 20220424
  Serious: Yes (Hospitalization)
  Sender: FDA-Public Use
  Company Number: US-BIOHAVEN PHARMACEUTICALS-2021BHV00686

PATIENT
  Age: 34 Year
  Sex: Male
  Weight: 118.04 kg

DRUGS (10)
  1. NURTEC ODT [Suspect]
     Active Substance: RIMEGEPANT SULFATE
     Indication: Migraine
     Dosage: 75 MG, AS NEEDED?TREATMENT START STOP DATE://?TREATMENT START STOP DATE:7-2020//
     Route: 060
     Dates: start: 202007
  2. NURTEC ODT [Suspect]
     Active Substance: RIMEGEPANT SULFATE
     Indication: Prophylaxis
     Dosage: 75 MG, AS OFTEN AS EVERY OTHER DAY OR EVERY 2 DAYS AS NEEDED?TREATMENT START STOP DATE:7-2020//?TREA
     Route: 048
  3. NURTEC ODT [Suspect]
     Active Substance: RIMEGEPANT SULFATE
     Indication: Migraine
     Route: 060
     Dates: start: 2019
  4. NURTEC ODT [Suspect]
     Active Substance: RIMEGEPANT SULFATE
     Dosage: ONE TABLET EVERY OTHER DAY
     Route: 060
     Dates: start: 202110
  5. GABAPENTIN [Concomitant]
     Active Substance: GABAPENTIN
     Indication: Migraine
     Dosage: 100MG TO 900MG OVER THE COURSE OF LIKE 8 OR 9 WEEKS
     Route: 065
  6. DOVATO [Concomitant]
     Active Substance: DOLUTEGRAVIR SODIUM\LAMIVUDINE
     Indication: Product used for unknown indication
     Dosage: 1 TABLETS, 1X/DAY?TREATMENT START STOP DATE:7-2020//?TREATMENT START STOP DATE://
     Route: 048
  7. CENTRUM ULTRA MENS [Concomitant]
     Indication: Product used for unknown indication
     Dosage: 1 TABLETS, 1X/DAY AFTER DINNER?TREATMENT START STOP DATE://?TREATMENT START STOP DATE:7-2020//
     Route: 048
  8. CETIRIZINE HYDROCHLORIDE [Concomitant]
     Active Substance: CETIRIZINE HYDROCHLORIDE
     Indication: Product used for unknown indication
     Dosage: 10 MG, 1X/DAY EVERY MORNING?TREATMENT START STOP DATE://?TREATMENT START STOP DATE:7-2020//
     Route: 048
  9. VITAMIN D3 [Concomitant]
     Active Substance: CHOLECALCIFEROL
     Indication: Product used for unknown indication
     Dosage: 1000 UNITED STATES PHARMACOPEIA UNIT?TREATMENT START STOP DATE:7-2020//?TREATMENT START STOP DATE://
     Route: 048
  10. NAPROXEN [Concomitant]
     Active Substance: NAPROXEN
     Indication: Product used for unknown indication
     Dosage: 500 MG, UP TO 2X/DAY AS NEEDED?TREATMENT START STOP DATE://?TREATMENT START STOP DATE:7-2020//
     Route: 048

REACTIONS (9)
  - Pituitary tumour benign [Recovered/Resolved]
  - Migraine [Not Recovered/Not Resolved]
  - Loss of therapeutic response [Not Recovered/Not Resolved]
  - Dizziness [Recovered/Resolved]
  - Feeling abnormal [Recovered/Resolved]
  - Wrong technique in product usage process [Unknown]
  - Medication overuse headache [Not Recovered/Not Resolved]
  - Weight increased [Unknown]
  - Product use issue [Unknown]

NARRATIVE: CASE EVENT DATE: 20210101
